FAERS Safety Report 7199786-5 (Version None)
Quarter: 2010Q4

REPORT INFORMATION
  Report Type: 
  Country: None (occurrence: None)
  Receive Date: 20101228
  Receipt Date: 20101220
  Transmission Date: 20110411
  Serious: Yes (Other)
  Sender: FDA-Public Use
  Company Number: DE-ROCHE-749292

PATIENT

DRUGS (3)
  1. MYCOPHENOLATE MOFETIL [Suspect]
     Indication: IMMUNOSUPPRESSION
     Route: 048
  2. PANTOPRAZOLE [Interacting]
     Route: 065
  3. CYCLOSPORINE [Concomitant]
     Indication: IMMUNOSUPPRESSION

REACTIONS (1)
  - DRUG INTERACTION [None]
